FAERS Safety Report 7502064-5 (Version None)
Quarter: 2011Q2

REPORT INFORMATION
  Report Type: 
  Country: None (occurrence: None)
  Receive Date: 20110525
  Receipt Date: 20110504
  Transmission Date: 20111010
  Serious: No
  Sender: FDA-Public Use
  Company Number: US-B.I. PHARMACEUTICALS,INC./RIDGEFIELD-2011-BP-07800BP

PATIENT
  Age: 72 Year
  Sex: Male
  Weight: 77.1 kg

DRUGS (11)
  1. TORSEMIDE [Concomitant]
     Route: 048
  2. NYSTATIN [Concomitant]
     Route: 048
  3. ASPIRIN [Concomitant]
     Dosage: 162 MG
  4. RAMIPRIL [Concomitant]
     Dosage: 10 MG
  5. TESTOSTERONE [Concomitant]
  6. ERGOCALCIFEROL [Concomitant]
     Route: 048
  7. ALLOPURINOL [Concomitant]
     Dosage: 300 MG
  8. DIGOXIN [Concomitant]
     Dosage: 125 MCG
  9. PROCRIT [Concomitant]
     Dosage: 10,000 U/ML INJECTION
  10. NITROGLYCERIN [Concomitant]
     Route: 060
  11. PRADAXA [Suspect]
     Indication: ATRIAL FIBRILLATION
     Dosage: 150 MG
     Dates: end: 20110220

REACTIONS (4)
  - BLOOD URINE PRESENT [None]
  - FLANK PAIN [None]
  - CREATININE RENAL CLEARANCE INCREASED [None]
  - OEDEMA PERIPHERAL [None]
